FAERS Safety Report 7376877-7 (Version None)
Quarter: 2011Q1

REPORT INFORMATION
  Report Type: 
  Country: None (occurrence: None)
  Receive Date: 20110327
  Receipt Date: 20110314
  Transmission Date: 20110831
  Serious: Yes (Death, Life-Threatening, Hospitalization)
  Sender: FDA-Public Use
  Company Number: IT-CELGENEUS-083-20785-11012601

PATIENT
  Sex: Female

DRUGS (4)
  1. LANSOPRAZOLE [Concomitant]
     Route: 048
     Dates: start: 20090201
  2. THALIDOMIDE [Suspect]
     Indication: MULTIPLE MYELOMA
     Dosage: 50 MILLIGRAM
     Route: 048
     Dates: start: 20090301, end: 20110101
  3. DEXAMETHASONE [Concomitant]
     Indication: MULTIPLE MYELOMA
     Route: 048
     Dates: start: 20090201
  4. TRAMADOL [Concomitant]
     Indication: PAIN
     Route: 048
     Dates: start: 20100715

REACTIONS (2)
  - SEPSIS [None]
  - RESPIRATORY FAILURE [None]
